FAERS Safety Report 7240319-2 (Version None)
Quarter: 2011Q1

REPORT INFORMATION
  Report Type: 
  Country: None (occurrence: None)
  Receive Date: 20110113
  Receipt Date: 20101213
  Transmission Date: 20110831
  Serious: Yes (Death, Life-Threatening, Hospitalization)
  Sender: FDA-Public Use
  Company Number: ES-021566

PATIENT
  Age: 79 Year
  Sex: Male

DRUGS (14)
  1. SIMVASTATIN [Concomitant]
  2. (METAMIZOLE SODIUM) [Concomitant]
  3. LOPERAMIDE [Concomitant]
  4. (ACECLOFENAC) [Concomitant]
  5. ACETYLSALICYLIC ACID SRT [Concomitant]
  6. ENALAPRIL MALEATE [Concomitant]
  7. KETOPROFEN [Concomitant]
  8. TRAMADOL HCL [Concomitant]
  9. BICALUTAMIDE [Concomitant]
  10. (ONDANSETRON) [Concomitant]
  11. ASCORBIC ACID [Concomitant]
  12. (TRAMADOL COMBINATIONS) [Concomitant]
  13. (CHLORAMBUCIL) [Suspect]
     Indication: CHRONIC LYMPHOCYTIC LEUKAEMIA
     Dosage: 20 MG QD
     Dates: start: 20101011
  14. FUROSEMIDE) [Concomitant]

REACTIONS (8)
  - HYPONATRAEMIA [None]
  - BLOOD CREATININE DECREASED [None]
  - WHITE BLOOD CELL COUNT INCREASED [None]
  - HAEMOGLOBIN DECREASED [None]
  - NEUTROPHIL COUNT INCREASED [None]
  - PNEUMONIA [None]
  - PLATELET COUNT DECREASED [None]
  - LYMPHOCYTE COUNT INCREASED [None]
